FAERS Safety Report 20704965 (Version 1)
Quarter: 2022Q2

REPORT INFORMATION
  Report Type: Spontaneous
  Country: US (occurrence: US)
  Receive Date: 20220413
  Receipt Date: 20220413
  Transmission Date: 20220720
  Serious: No
  Sender: FDA-Public Use
  Company Number: US-TORRENT-00011827

PATIENT
  Age: 16 Year
  Sex: Female

DRUGS (1)
  1. DAPSONE [Suspect]
     Active Substance: DAPSONE
     Indication: Acne
     Dosage: (7.5%-60G)ONCE A DAY
     Route: 065
     Dates: start: 20220311

REACTIONS (2)
  - Product quality issue [Unknown]
  - Product formulation issue [Unknown]
